FAERS Safety Report 6098078-5 (Version None)
Quarter: 2009Q1

REPORT INFORMATION
  Report Type: 
  Country: None (occurrence: None)
  Receive Date: 20090227
  Receipt Date: 20090217
  Transmission Date: 20090719
  Serious: Yes (Death)
  Sender: FDA-Public Use
  Company Number: US-ABBOTT-08P-163-0492666-00

PATIENT
  Sex: Female
  Weight: 66.284 kg

DRUGS (20)
  1. HUMIRA [Suspect]
     Indication: PSORIASIS
  2. KADIAN [Concomitant]
     Indication: DRUG USE FOR UNKNOWN INDICATION
     Dates: start: 20080114
  3. HALDOL [Concomitant]
     Indication: NAUSEA
     Dates: start: 20081121
  4. METHADONE HCL [Concomitant]
     Indication: DRUG USE FOR UNKNOWN INDICATION
     Dates: start: 20081121
  5. ATIVAN [Concomitant]
     Indication: DRUG USE FOR UNKNOWN INDICATION
     Dosage: 1-2 EVERY 4 HOURS
     Dates: start: 20081121
  6. ROXANOL [Concomitant]
     Indication: DRUG USE FOR UNKNOWN INDICATION
     Dosage: 15 MG ONCE EVERY 2 HOURS AS NEEDED
     Dates: start: 20081121
  7. ELAVIL [Concomitant]
     Indication: DRUG USE FOR UNKNOWN INDICATION
     Dosage: AT BEDTIME
     Dates: start: 20081121
  8. ASPIRIN [Concomitant]
     Indication: DRUG USE FOR UNKNOWN INDICATION
  9. DULCOLAX [Concomitant]
     Indication: DRUG USE FOR UNKNOWN INDICATION
  10. LASIX [Concomitant]
     Indication: DRUG USE FOR UNKNOWN INDICATION
  11. INSULIN [Concomitant]
     Indication: DRUG USE FOR UNKNOWN INDICATION
  12. SYNTHROID [Concomitant]
     Indication: DRUG USE FOR UNKNOWN INDICATION
  13. ZESTRIL [Concomitant]
     Indication: DRUG USE FOR UNKNOWN INDICATION
  14. GLUCOPHAGE [Concomitant]
     Indication: DRUG USE FOR UNKNOWN INDICATION
  15. NITROGLYCERIN [Concomitant]
     Indication: DRUG USE FOR UNKNOWN INDICATION
  16. NICOTINE [Concomitant]
     Indication: DRUG USE FOR UNKNOWN INDICATION
  17. COLACE [Concomitant]
     Indication: DRUG USE FOR UNKNOWN INDICATION
  18. ZOFRAN [Concomitant]
     Indication: DRUG USE FOR UNKNOWN INDICATION
  19. MS CONTIN [Concomitant]
     Indication: DRUG USE FOR UNKNOWN INDICATION
     Route: 048
  20. MORPHINE [Concomitant]
     Indication: DRUG USE FOR UNKNOWN INDICATION

REACTIONS (14)
  - ABASIA [None]
  - ABDOMINAL PAIN [None]
  - ACTIVITIES OF DAILY LIVING IMPAIRED [None]
  - ASTHENIA [None]
  - CACHEXIA [None]
  - CONSTIPATION [None]
  - DISEASE PROGRESSION [None]
  - FEELING ABNORMAL [None]
  - HEPATIC FUNCTION ABNORMAL [None]
  - LIVER FUNCTION TEST ABNORMAL [None]
  - MOBILITY DECREASED [None]
  - OEDEMA PERIPHERAL [None]
  - PULMONARY FUNCTION TEST ABNORMAL [None]
  - SMALL CELL LUNG CANCER METASTATIC [None]
